FAERS Safety Report 6119436-6 (Version None)
Quarter: 2009Q1

REPORT INFORMATION
  Report Type: 
  Country: None (occurrence: None)
  Receive Date: 20090316
  Receipt Date: 20090306
  Transmission Date: 20090719
  Serious: Yes (Hospitalization)
  Sender: FDA-Public Use
  Company Number: A0772863A

PATIENT
  Sex: Male

DRUGS (11)
  1. AVANDIA [Suspect]
     Indication: DIABETES MELLITUS
     Route: 048
  2. AVANDAMET [Suspect]
     Indication: DIABETES MELLITUS
     Route: 048
  3. VERAPAMIL [Concomitant]
  4. COUMADIN [Concomitant]
  5. FOLIC ACID [Concomitant]
  6. ALLOPURINOL [Concomitant]
  7. NEXIUM [Concomitant]
  8. PROSCAR [Concomitant]
  9. DIOVAN [Concomitant]
  10. SYMBICORT [Concomitant]
  11. SPIRIVA [Concomitant]

REACTIONS (2)
  - CARDIAC FAILURE CONGESTIVE [None]
  - MYOCARDIAL INFARCTION [None]
